FAERS Safety Report 9421821 (Version 1)
Quarter: 2013Q3

REPORT INFORMATION
  Report Type: Spontaneous
  Country: US (occurrence: None)
  Receive Date: 20130724
  Receipt Date: 20130724
  Transmission Date: 20140515
  Serious: No
  Sender: FDA-Public Use
  Company Number: None

PATIENT
  Age: 71 Year
  Sex: Male
  Weight: 104.33 kg

DRUGS (1)
  1. DIOVAN HCTZ [Suspect]
     Indication: HYPERTENSION
     Route: 048
     Dates: start: 201303, end: 201406

REACTIONS (2)
  - Arthralgia [None]
  - Myalgia [None]
